FAERS Safety Report 25340876 (Version 1)
Quarter: 2025Q2

REPORT INFORMATION
  Report Type: Spontaneous
  Country: CN (occurrence: CN)
  Receive Date: 20250521
  Receipt Date: 20250521
  Transmission Date: 20250717
  Serious: Yes (Other)
  Sender: BAXTER
  Company Number: None

PATIENT
  Age: 59 Year
  Sex: Female

DRUGS (4)
  1. CYCLOPHOSPHAMIDE [Suspect]
     Active Substance: CYCLOPHOSPHAMIDE
     Indication: Breast neoplasm
     Dosage: 0.8 G, QD (0.8 G INJECTION, ONCE + NS 500ML)
     Route: 041
     Dates: start: 20250503, end: 20250503
  2. SODIUM CHLORIDE [Suspect]
     Active Substance: SODIUM CHLORIDE
     Dosage: 500 ML NS + CYCLOPHOSPHAMIDE 0.8G FOR INJECTION, ONCE, QD
     Route: 041
     Dates: start: 20250503, end: 20250503
  3. SODIUM CHLORIDE [Suspect]
     Active Substance: SODIUM CHLORIDE
     Dosage: 500 ML NS + EPIRUBICIN HYDROCHLORIDE 145MG FOR INJECTION, QD
     Route: 041
     Dates: start: 20250503, end: 20250503
  4. EPIRUBICIN HYDROCHLORIDE [Suspect]
     Active Substance: EPIRUBICIN HYDROCHLORIDE
     Indication: Breast neoplasm
     Dosage: 145 MG, QD + NS 500ML
     Route: 041
     Dates: start: 20250503, end: 20250503

REACTIONS (1)
  - Myelosuppression [Recovering/Resolving]

NARRATIVE: CASE EVENT DATE: 20250510
